FAERS Safety Report 10193292 (Version 1)
Quarter: 2014Q2

REPORT INFORMATION
  Report Type: Spontaneous
  Country: US (occurrence: US)
  Receive Date: 20140524
  Receipt Date: 20140524
  Transmission Date: 20141212
  Serious: No
  Sender: FDA-Public Use
  Company Number: US-SA-2013SA121382

PATIENT
  Age: 55 Year
  Sex: Female

DRUGS (5)
  1. LANTUS SOLOSTAR [Suspect]
     Indication: TYPE 2 DIABETES MELLITUS
     Dosage: TOOK 5-7 UNITS FROM ABOUT A YEAR AGO
     Route: 051
  2. APIDRA SOLOSTAR [Suspect]
     Route: 058
  3. SOLOSTAR [Concomitant]
     Indication: TYPE 2 DIABETES MELLITUS
  4. SOLOSTAR [Concomitant]
  5. GLUCOPHAGE [Concomitant]

REACTIONS (1)
  - Visual impairment [Unknown]
